FAERS Safety Report 4855123-X (Version None)
Quarter: 2005Q4

REPORT INFORMATION
  Report Type: 
  Country: None (occurrence: None)
  Receive Date: 20051125
  Receipt Date: 20041227
  Transmission Date: 20060501
  Serious: Yes (Hospitalization)
  Sender: FDA-Public Use
  Company Number: US-JNJFOC-20040908643

PATIENT
  Age: 63 Year
  Sex: Male

DRUGS (1)
  1. LEVAQUIN [Suspect]
     Indication: PREMEDICATION
     Dosage: 500 MG, 2 IN 1 DAY, ORAL
     Route: 048
     Dates: start: 20040920

REACTIONS (4)
  - ESCHERICHIA INFECTION [None]
  - PATHOGEN RESISTANCE [None]
  - RECTAL HAEMORRHAGE [None]
  - UROSEPSIS [None]
